FAERS Safety Report 4860121-6 (Version None)
Quarter: 2005Q4

REPORT INFORMATION
  Report Type: 
  Country: None (occurrence: None)
  Receive Date: 20051219
  Receipt Date: 20051208
  Transmission Date: 20060501
  Serious: Yes (Life-Threatening, Hospitalization)
  Sender: FDA-Public Use
  Company Number: JP-JNJFOC-20051001244

PATIENT
  Sex: Male

DRUGS (12)
  1. RISPERDAL [Suspect]
     Route: 048
  2. RISPERDAL [Suspect]
     Route: 048
  3. RISPERDAL [Suspect]
     Route: 048
  4. RISPERDAL [Suspect]
     Indication: SCHIZOPHRENIA
     Route: 048
  5. CHLORPROMAZINE-PROMETHAZINE [Suspect]
     Indication: DRUG USE FOR UNKNOWN INDICATION
  6. QUETIAPINE FUMARATE [Concomitant]
     Route: 048
  7. QUETIAPINE FUMARATE [Concomitant]
     Indication: SLEEP DISORDER
     Route: 048
  8. ETIZOLAM [Concomitant]
     Indication: INSOMNIA
     Route: 048
  9. FLUNITRAZEPAM [Concomitant]
     Route: 048
  10. TRIAZOLAM [Concomitant]
     Route: 048
  11. BIPERIDEN HYDROCHLORIDE TAB [Concomitant]
     Route: 048
  12. BIPERIDEN HYDROCHLORIDE TAB [Concomitant]
     Indication: PARKINSONISM
     Route: 048

REACTIONS (9)
  - CONVULSION [None]
  - DEHYDRATION [None]
  - DIZZINESS [None]
  - ENCEPHALITIS [None]
  - FALL [None]
  - INADEQUATE DIET [None]
  - NEUROLEPTIC MALIGNANT SYNDROME [None]
  - OPEN WOUND [None]
  - PNEUMONIA [None]
